FAERS Safety Report 6766015-3 (Version None)
Quarter: 2010Q2

REPORT INFORMATION
  Report Type: 
  Country: None (occurrence: None)
  Receive Date: 20100611
  Receipt Date: 20100603
  Transmission Date: 20101027
  Serious: Yes (Other)
  Sender: FDA-Public Use
  Company Number: A0862739A

PATIENT
  Sex: Male

DRUGS (6)
  1. VOTRIENT [Suspect]
     Indication: ADENOID CYSTIC CARCINOMA
     Dosage: 400MG PER DAY
     Route: 048
     Dates: start: 20090501, end: 20100510
  2. CHOLESTEROL [Concomitant]
  3. UNSPECIFIED MEDICATION [Concomitant]
  4. THYROID TAB [Concomitant]
  5. ANTI-DEPRESSANT (UNKNOWN) [Concomitant]
  6. PAIN MEDICATION [Concomitant]

REACTIONS (8)
  - CHEST PAIN [None]
  - HEPATIC PAIN [None]
  - METASTASES TO BONE [None]
  - METASTASES TO LIVER [None]
  - METASTASES TO LUNG [None]
  - METASTASIS [None]
  - NEOPLASM [None]
  - VOMITING [None]
